FAERS Safety Report 21838663 (Version 1)
Quarter: 2023Q1

REPORT INFORMATION
  Report Type: Spontaneous
  Country: US (occurrence: US)
  Receive Date: 20230109
  Receipt Date: 20230109
  Transmission Date: 20230417
  Serious: Yes (Hospitalization)
  Sender: FDA-Public Use
  Company Number: US-BRISTOL-MYERS SQUIBB COMPANY-2023-001826

PATIENT
  Age: 63 Year
  Sex: Male
  Weight: 185 kg

DRUGS (8)
  1. OPDIVO [Suspect]
     Active Substance: NIVOLUMAB
     Indication: Malignant melanoma
     Dosage: DOSE: 480MG/4 ML VIAL; FREQ : EVERY MONTH
     Route: 042
     Dates: start: 20220829
  2. OPDIVO [Suspect]
     Active Substance: NIVOLUMAB
     Dosage: DOSE: 480MG/4 ML VIAL; FREQ : EVERY MONTH
     Route: 042
     Dates: start: 20221010
  3. OPDIVO [Suspect]
     Active Substance: NIVOLUMAB
     Dosage: DOSE: 480MG/4 ML VIAL; FREQ : EVERY MONTH
     Route: 042
     Dates: start: 20221031
  4. OPDIVO [Suspect]
     Active Substance: NIVOLUMAB
     Dosage: DOSE: 480MG/4 ML VIAL; FREQ : EVERY MONTH
     Route: 042
     Dates: start: 20221122
  5. APIXABAN [Concomitant]
     Active Substance: APIXABAN
     Indication: Product used for unknown indication
  6. OXYCODONE [Concomitant]
     Active Substance: OXYCODONE
     Indication: Product used for unknown indication
  7. DULOXETINE [Concomitant]
     Active Substance: DULOXETINE
     Indication: Product used for unknown indication
  8. FUROSEMIDE [Concomitant]
     Active Substance: FUROSEMIDE
     Indication: Product used for unknown indication

REACTIONS (4)
  - Chills [Unknown]
  - Hyperhidrosis [Not Recovered/Not Resolved]
  - Tachycardia [Not Recovered/Not Resolved]
  - Hypertension [Not Recovered/Not Resolved]

NARRATIVE: CASE EVENT DATE: 20221031
